FAERS Safety Report 6537403-5 (Version None)
Quarter: 2010Q1

REPORT INFORMATION
  Report Type: 
  Country: None (occurrence: None)
  Receive Date: 20100107
  Receipt Date: 20091224
  Transmission Date: 20100710
  Serious: Yes (Life-Threatening)
  Sender: FDA-Public Use
  Company Number: IDA-00314

PATIENT
  Age: 70 Year
  Sex: Female

DRUGS (1)
  1. INDERAL [Suspect]
     Dosage: 10 MG QD ORAL FORMULATION: TABLET
     Route: 048

REACTIONS (6)
  - BLOOD PRESSURE DECREASED [None]
  - BRADYCARDIA [None]
  - BRONCHOSPASM [None]
  - CARDIAC FAILURE [None]
  - FALL [None]
  - SHOCK [None]
